FAERS Safety Report 5615477-3 (Version None)
Quarter: 2008Q1

REPORT INFORMATION
  Report Type: 
  Country: None (occurrence: None)
  Receive Date: 20080204
  Receipt Date: 20080204
  Transmission Date: 20080703
  Serious: Yes (Other)
  Sender: FDA-Public Use
  Company Number: None

PATIENT
  Age: 65 Year
  Sex: Male

DRUGS (3)
  1. SIMVASTATIN [Suspect]
     Indication: BLOOD CHOLESTEROL INCREASED
     Dosage: TAKE 1 TABLET DAILY
     Dates: start: 20071210
  2. AMLODIPINE/BENAZEPR [Concomitant]
  3. METOPRO SUC(TOPROL)ER [Concomitant]

REACTIONS (1)
  - THERAPEUTIC RESPONSE DECREASED [None]
